FAERS Safety Report 13648519 (Version 1)
Quarter: 2017Q2

REPORT INFORMATION
  Report Type: Spontaneous
  Country: JP (occurrence: JP)
  Receive Date: 20170613
  Receipt Date: 20170613
  Transmission Date: 20170830
  Serious: Yes (Hospitalization)
  Sender: FDA-Public Use
  Company Number: JP-MALLINCKRODT-T201503142

PATIENT
  Age: 62 Year
  Sex: Male
  Weight: 58 kg

DRUGS (28)
  1. METHADONE [Suspect]
     Active Substance: METHADONE HYDROCHLORIDE
     Dosage: 5 MG, (25 MG DAILY DOSE)
     Route: 048
     Dates: start: 20150114, end: 20150203
  2. LYRICA [Concomitant]
     Active Substance: PREGABALIN
     Dosage: 300 MG
     Route: 048
     Dates: start: 20150414, end: 20150420
  3. XYLOCAINE [Concomitant]
     Active Substance: LIDOCAINE HYDROCHLORIDE
     Indication: ANALGESIC THERAPY
     Dosage: 600 MG
     Route: 051
     Dates: start: 20150605
  4. METHADONE [Suspect]
     Active Substance: METHADONE HYDROCHLORIDE
     Indication: CANCER PAIN
     Dosage: 10 MG, (30 MG DAILY DOSE)
     Route: 048
     Dates: start: 20141203, end: 20141204
  5. HYPEN [Concomitant]
     Active Substance: ETODOLAC
     Indication: ANALGESIC THERAPY
     Dosage: 800 MG
     Route: 048
     Dates: start: 20141121, end: 20150427
  6. LAC-B [Concomitant]
     Active Substance: BIFIDOBACTERIUM SPP.
     Dosage: 3 G
     Route: 048
     Dates: end: 20150121
  7. METHADONE [Suspect]
     Active Substance: METHADONE HYDROCHLORIDE
     Dosage: 20 MG (60 MG DAILY DOSE)
     Route: 048
     Dates: start: 20150414, end: 20150420
  8. METHADONE [Suspect]
     Active Substance: METHADONE HYDROCHLORIDE
     Dosage: 30 MG (90 MG DAILY DOSE)
     Route: 048
     Dates: start: 20150428, end: 20150605
  9. LYRICA [Concomitant]
     Active Substance: PREGABALIN
     Dosage: 150 MG
     Route: 048
     Dates: start: 20150110, end: 20150413
  10. LYRICA [Concomitant]
     Active Substance: PREGABALIN
     Dosage: 600 MG
     Route: 048
     Dates: start: 20150421, end: 20150511
  11. TAKEPRON [Concomitant]
     Active Substance: LANSOPRAZOLE
     Dosage: 15 MG
     Route: 048
     Dates: start: 20140709, end: 20150605
  12. METHADONE [Suspect]
     Active Substance: METHADONE HYDROCHLORIDE
     Dosage: (45 MG DAILY DOSE)
     Route: 048
     Dates: start: 20150212, end: 20150413
  13. METHADONE [Suspect]
     Active Substance: METHADONE HYDROCHLORIDE
     Dosage: 25 MG (75 MG DAILY DOSE)
     Route: 048
     Dates: start: 20150421, end: 20150427
  14. LYRICA [Concomitant]
     Active Substance: PREGABALIN
     Dosage: 225 MG
     Route: 048
     Dates: start: 20150512, end: 20150605
  15. METHYCOBAL [Concomitant]
     Active Substance: METHYLCOBALAMIN
     Dosage: 1500 ?G
     Route: 048
     Dates: end: 20150605
  16. FORSENID [Concomitant]
     Active Substance: SENNOSIDES A AND B
     Dosage: 24 MG
     Route: 048
     Dates: end: 20150605
  17. DIART [Concomitant]
     Active Substance: AZOSEMIDE
     Dosage: 30 MG
     Route: 048
     Dates: start: 20150107, end: 20150204
  18. METHADONE [Suspect]
     Active Substance: METHADONE HYDROCHLORIDE
     Dosage: 5 MG, (20 MG DAILY DOSE)
     Route: 048
     Dates: start: 20141208, end: 20150113
  19. LYRICA [Concomitant]
     Active Substance: PREGABALIN
     Indication: ANALGESIC THERAPY
     Dosage: 150 MG
     Route: 048
     Dates: start: 20141121, end: 20150107
  20. SHINLUCK [Concomitant]
     Active Substance: SODIUM PICOSULFATE
     Dosage: 10 GTT
     Route: 048
     Dates: end: 20150605
  21. METHADONE [Suspect]
     Active Substance: METHADONE HYDROCHLORIDE
     Dosage: 5 MG, (15 MG DAILY DOSE)
     Route: 048
     Dates: start: 20141204, end: 20141208
  22. FENTANYL. [Concomitant]
     Active Substance: FENTANYL
     Dosage: 2.5 MG
     Route: 051
     Dates: start: 20141121, end: 20141204
  23. HYPEN [Concomitant]
     Active Substance: ETODOLAC
     Dosage: 400 MG
     Route: 048
     Dates: start: 20150428, end: 20150605
  24. SHAKUYAKUKANZOTO [Concomitant]
     Active Substance: HERBALS
     Dosage: 7.5 G
     Route: 048
     Dates: end: 20150121
  25. MAGLAX [Concomitant]
     Active Substance: MAGNESIUM OXIDE
     Dosage: 1980 MG
     Route: 048
     Dates: end: 20150605
  26. DIART [Concomitant]
     Active Substance: AZOSEMIDE
     Dosage: 30 MG
     Route: 048
     Dates: start: 20150420, end: 20150605
  27. METHADONE [Suspect]
     Active Substance: METHADONE HYDROCHLORIDE
     Dosage: 5 MG, (30 MG DAILY DOSE)
     Route: 048
     Dates: start: 20150204, end: 20150211
  28. MORPHINE HYDROCHLORIDE [Suspect]
     Active Substance: MORPHINE HYDROCHLORIDE
     Indication: BREAKTHROUGH PAIN
     Dosage: 30 MG, PRN
     Route: 054
     Dates: start: 20141202

REACTIONS (3)
  - Pneumonia [Recovered/Resolved]
  - Nausea [Recovered/Resolved]
  - Somnolence [Recovered/Resolved]

NARRATIVE: CASE EVENT DATE: 20141203
